FAERS Safety Report 8870014 (Version 1)
Quarter: 2012Q4

REPORT INFORMATION
  Report Type: Spontaneous
  Country: US (occurrence: None)
  Receive Date: 20121025
  Receipt Date: 20121025
  Transmission Date: 20130627
  Serious: Yes (Other)
  Sender: FDA-Public Use
  Company Number: None

PATIENT
  Age: 67 Year
  Sex: Female
  Weight: 77.11 kg

DRUGS (1)
  1. METFORMIN [Suspect]
     Indication: TYPE 2 DIABETES MELLITUS
     Dosage: 2500 mc daily po
     Route: 048
     Dates: start: 20120801, end: 20121024

REACTIONS (6)
  - Nausea [None]
  - Headache [None]
  - Fatigue [None]
  - Malaise [None]
  - Blood glucose decreased [None]
  - Product quality issue [None]
